FAERS Safety Report 8891399 (Version 1)
Quarter: 2012Q4

REPORT INFORMATION
  Report Type: Spontaneous
  Country: US (occurrence: None)
  Receive Date: 20121105
  Receipt Date: 20121105
  Transmission Date: 20130627
  Serious: Yes (Other)
  Sender: FDA-Public Use
  Company Number: None

PATIENT

DRUGS (4)
  1. DIVALPROEX SODIUM [Suspect]
     Indication: LENNOX-GASTAUT SYNDROME
     Route: 048
     Dates: start: 20121013, end: 20121015
  2. DIVALPROEX SODIUM [Suspect]
     Indication: SEIZURE
     Route: 048
     Dates: start: 20121013, end: 20121015
  3. BANZEL [Suspect]
  4. DAPIPRAZOLE HYDROCHLORIDE [Suspect]

REACTIONS (2)
  - Product substitution issue [None]
  - Convulsion [None]
